FAERS Safety Report 21741796 (Version 3)
Quarter: 2023Q1

REPORT INFORMATION
  Report Type: Spontaneous
  Country: US (occurrence: US)
  Receive Date: 20221216
  Receipt Date: 20230126
  Transmission Date: 20230417
  Serious: Yes (Death, Hospitalization, Other)
  Sender: FDA-Public Use
  Company Number: US-R-PHARM US LLC-2022RPM00032

PATIENT
  Sex: Female
  Weight: 69.388 kg

DRUGS (14)
  1. IXEMPRA [Suspect]
     Active Substance: IXABEPILONE
     Indication: Endometrial adenocarcinoma
     Dosage: UNK
     Dates: start: 20220401, end: 20220701
  2. IXEMPRA [Suspect]
     Active Substance: IXABEPILONE
     Indication: Ovarian cancer
     Dosage: 36.2 MG, 1X/WEEK (20 MG/M2 ON DAYS 1, 8, 15, OF A 28 DAYS CYCLE)
     Route: 042
     Dates: start: 20221117, end: 20221117
  3. IXEMPRA [Suspect]
     Active Substance: IXABEPILONE
     Indication: Uterine cancer
  4. BEVACIZUMAB [Concomitant]
     Active Substance: BEVACIZUMAB
     Dosage: 10 MG/KG ON DAYS 1 AND 15
  5. ELIQUIS [Concomitant]
     Active Substance: APIXABAN
     Dosage: 5 MG, 2X/DAY
     Route: 048
     Dates: start: 20221012
  6. BISACODYL [Concomitant]
     Active Substance: BISACODYL
     Dosage: INSERT 1 SUPPOSITORY BY RECTUM 1X/DAY
     Route: 054
     Dates: start: 20221104
  7. EUCERIN ORIGINAL HEALING [Concomitant]
     Dosage: APPLY TO HAND AND FEET 3 TO 4 TIMES DAILY FOR CHEMOTHERAPY RELATED SKIN DRYNESS AND IRRITATION
     Route: 061
     Dates: start: 20211015
  8. FENTANYL [Concomitant]
     Active Substance: FENTANYL
     Dosage: 1 PATCH TO SKIN AS DIRECTED EVERY THIRD DAY, APPLY AT SAME TIME AS 25 ?G PATCH
     Route: 062
     Dates: start: 20221116
  9. FENTANYL [Concomitant]
     Active Substance: FENTANYL
     Dosage: 1 PATCH TO SKIN AS DIRECTED EVERY THIRD DAY, APPLY AT THE SAME TIME AS 25 ?G PATCH.
     Route: 062
     Dates: start: 20221115
  10. OLANZAPINE [Concomitant]
     Active Substance: OLANZAPINE
     Dosage: 5 MG, 1X/DAY AT BEDTIME
     Route: 048
     Dates: start: 20221114, end: 20221201
  11. OXYCODONE [Concomitant]
     Active Substance: OXYCODONE
     Dosage: 0.5 ML (10 MG) UNDER TONGUE EVERY 3 HOURS AS NEEDED FOR BREAKTHROUGH PAIN. MAY DAILY AMOUNT OF 4 ML.
     Route: 060
     Dates: start: 20221103
  12. PROCHLORPERAZINE [Concomitant]
     Active Substance: PROCHLORPERAZINE
     Dosage: 1 TABLET (10 MG) EVERY 6 HOURS AS NEEDED FOR NAUSEA/EMESIS
     Route: 048
     Dates: start: 20221117, end: 20221205
  13. PROMETHAZINE [Concomitant]
     Active Substance: PROMETHAZINE HYDROCHLORIDE
     Dosage: 1 SUPPOSITORY (25 MG) EVERY 6 HOURS AS NEEDED FOR NAUSEA
     Route: 054
     Dates: start: 20221103
  14. DOCUSATE SODIUM\SENNOSIDES A AND B [Concomitant]
     Active Substance: DOCUSATE SODIUM\SENNOSIDES A AND B
     Dosage: 1 TABLETS, 1X/DAY
     Route: 048
     Dates: start: 20221116

REACTIONS (31)
  - Death [Fatal]
  - Malnutrition [Unknown]
  - Ascites [Unknown]
  - Pleural effusion [Unknown]
  - Gastrostomy tube site complication [Recovered/Resolved]
  - Laboratory test abnormal [Unknown]
  - Staphylococcal bacteraemia [Unknown]
  - Pneumonia pseudomonal [Unknown]
  - Small intestinal obstruction [Unknown]
  - Hyperkalaemia [Unknown]
  - Gait inability [Unknown]
  - Metastases to peritoneum [Unknown]
  - Physical deconditioning [Unknown]
  - Bacteraemia [Unknown]
  - Hypokalaemia [Unknown]
  - Hypotension [Unknown]
  - Dehydration [Unknown]
  - Pneumonia [Unknown]
  - Abdominal pain [Not Recovered/Not Resolved]
  - Nausea [Not Recovered/Not Resolved]
  - Vomiting [Recovering/Resolving]
  - Dyspnoea [Unknown]
  - Platelet count increased [Unknown]
  - Carbon dioxide increased [Unknown]
  - Blood glucose increased [Unknown]
  - Salivary hypersecretion [Not Recovered/Not Resolved]
  - Haematocrit decreased [Unknown]
  - Haemoglobin decreased [Unknown]
  - Blood sodium decreased [Unknown]
  - Off label use [Unknown]
  - Product dose omission issue [Unknown]

NARRATIVE: CASE EVENT DATE: 20220101
